FAERS Safety Report 22953390 (Version 3)
Quarter: 2023Q4

REPORT INFORMATION
  Report Type: Spontaneous
  Country: US (occurrence: US)
  Receive Date: 20230918
  Receipt Date: 20231109
  Transmission Date: 20240110
  Serious: No
  Sender: FDA-Public Use
  Company Number: US-LUPIN PHARMACEUTICALS INC.-2023-07856

PATIENT

DRUGS (1)
  1. ZOLPIDEM TARTRATE [Suspect]
     Active Substance: ZOLPIDEM TARTRATE
     Indication: Insomnia
     Dosage: UNK UNK, QD (1-2 TABLETS AT NIGHT)
     Route: 048
     Dates: start: 202304

REACTIONS (5)
  - Drug ineffective [Unknown]
  - Extra dose administered [Unknown]
  - Product quality issue [Unknown]
  - Product solubility abnormal [Unknown]
  - Product substitution issue [Unknown]
